FAERS Safety Report 8790658 (Version 1)
Quarter: 2012Q4

REPORT INFORMATION
  Report Type: Spontaneous
  Country: US (occurrence: None)
  Receive Date: 20120913
  Receipt Date: 20120913
  Transmission Date: 20130627
  Serious: Yes (Death)
  Sender: FDA-Public Use
  Company Number: None

PATIENT
  Age: 68 Year
  Sex: Female
  Weight: 42.4 kg

DRUGS (1)
  1. RIFAMPICIN [Suspect]
     Indication: ATROPHY
     Dates: start: 20111212, end: 20120813

REACTIONS (4)
  - Stridor [None]
  - Dyspnoea [None]
  - Unresponsive to stimuli [None]
  - Refusal of treatment by patient [None]
